FAERS Safety Report 14920389 (Version 1)
Quarter: 2018Q2

REPORT INFORMATION
  Report Type: Spontaneous
  Country: US (occurrence: US)
  Receive Date: 20180521
  Receipt Date: 20180521
  Transmission Date: 20180711
  Serious: No
  Sender: FDA-Public Use
  Company Number: US-VERTEX PHARMACEUTICALS-2018-003385

PATIENT
  Sex: Male

DRUGS (10)
  1. ORKAMBI [Suspect]
     Active Substance: IVACAFTOR\LUMACAFTOR
     Indication: CYSTIC FIBROSIS
     Dosage: 200/125 MG TABLETS, BID
     Route: 048
     Dates: end: 2018
  2. URSODIOL. [Concomitant]
     Active Substance: URSODIOL
     Dosage: UNK
  3. VALACYCLOVIR                       /01269701/ [Concomitant]
     Active Substance: VALACYCLOVIR HYDROCHLORIDE
     Dosage: UNK
  4. OSELTAMIVIR PHOSPHATE. [Concomitant]
     Active Substance: OSELTAMIVIR PHOSPHATE
     Dosage: UNK
  5. HUMALOG [Concomitant]
     Active Substance: INSULIN LISPRO
     Dosage: UNK
  6. GABAPENTIN. [Concomitant]
     Active Substance: GABAPENTIN
     Dosage: UNK
  7. CIPROFLOXACIN. [Concomitant]
     Active Substance: CIPROFLOXACIN
     Dosage: UNK
     Dates: start: 20180509
  8. ATORVASTATIN [Concomitant]
     Active Substance: ATORVASTATIN
     Dosage: UNK
  9. AMLODIPINE [Concomitant]
     Active Substance: AMLODIPINE BESYLATE
     Dosage: UNK
  10. TOBRAMYCIN. [Concomitant]
     Active Substance: TOBRAMYCIN
     Dosage: UNK

REACTIONS (1)
  - Corneal disorder [Recovering/Resolving]
